FAERS Safety Report 7505148-0 (Version None)
Quarter: 2011Q2

REPORT INFORMATION
  Report Type: 
  Country: None (occurrence: None)
  Receive Date: 20110526
  Receipt Date: 20110330
  Transmission Date: 20111010
  Serious: Yes (Hospitalization, Other)
  Sender: FDA-Public Use
  Company Number: US-BAYER-2011-035195

PATIENT
  Age: 31 Year
  Sex: Female
  Weight: 59.864 kg

DRUGS (9)
  1. TRILEPTAL [Concomitant]
  2. WELLBUTRIN [Concomitant]
     Indication: DEPRESSION
  3. ABILIFY [Concomitant]
  4. TOPAMAX [Concomitant]
     Indication: MIGRAINE
  5. AMBIEN [Concomitant]
     Indication: SLEEP DISORDER THERAPY
  6. DROSPIRENONE AND ETHINYL ESTRADIOL [Suspect]
     Indication: CONTRACEPTION
     Dosage: UNK
     Route: 048
     Dates: start: 20090101, end: 20100101
  7. KLONOPIN [Concomitant]
     Indication: ANXIETY
  8. NAPROXEN [Concomitant]
  9. UNCODEABLE ^UNKNOWN MANUFACTURER^ [Concomitant]

REACTIONS (3)
  - CHOLECYSTITIS CHRONIC [None]
  - HEPATOBILIARY SCAN ABNORMAL [None]
  - CHOLECYSTECTOMY [None]
